FAERS Safety Report 5668448-5 (Version None)
Quarter: 2008Q1

REPORT INFORMATION
  Report Type: 
  Country: None (occurrence: None)
  Receive Date: 20080315
  Receipt Date: 20080222
  Transmission Date: 20080703
  Serious: No
  Sender: FDA-Public Use
  Company Number: US-ABBOTT-08P-163-0440039-00

PATIENT
  Sex: Female

DRUGS (6)
  1. HUMIRA [Suspect]
     Indication: RHEUMATOID ARTHRITIS
     Route: 058
     Dates: start: 20060101, end: 20070101
  2. METHOTREXATE [Concomitant]
     Indication: RHEUMATOID ARTHRITIS
  3. FOLIC ACID [Concomitant]
     Indication: MEDICAL DIET
  4. PREDNISONE [Concomitant]
     Indication: RHEUMATOID ARTHRITIS
  5. GENERIC MOBIC [Concomitant]
     Indication: RHEUMATOID ARTHRITIS
  6. GINGER ROOT [Concomitant]
     Indication: DRUG USE FOR UNKNOWN INDICATION

REACTIONS (3)
  - ARTHRALGIA [None]
  - GAIT DISTURBANCE [None]
  - PAIN IN EXTREMITY [None]
